FAERS Safety Report 9013087 (Version 1)
Quarter: 2013Q1

REPORT INFORMATION
  Report Type: Spontaneous
  Country: FR (occurrence: FR)
  Receive Date: 20130114
  Receipt Date: 20130114
  Transmission Date: 20140127
  Serious: Yes (Hospitalization)
  Sender: FDA-Public Use
  Company Number: FR-ASTRAZENECA-2013SE00910

PATIENT
  Age: 82 Year
  Sex: Female

DRUGS (12)
  1. INEXIUM [Suspect]
     Indication: PROPHYLAXIS AGAINST GASTROINTESTINAL ULCER
     Route: 042
     Dates: start: 20121023
  2. DOLPIRANE [Suspect]
     Indication: PAIN
     Route: 048
     Dates: start: 20121101, end: 20121112
  3. PROGLICEM [Suspect]
     Indication: HYPERINSULINISM
     Route: 048
     Dates: start: 20121020, end: 20121126
  4. CALCIPARINE [Suspect]
     Indication: THROMBOSIS PROPHYLAXIS
     Route: 042
     Dates: start: 20120929, end: 20121105
  5. ISOPTINE [Concomitant]
  6. KARDEGIC [Concomitant]
  7. PLAVIX [Concomitant]
  8. COVERSYL [Concomitant]
  9. LASILIX [Concomitant]
  10. NITRIDERM [Concomitant]
  11. CORVASAL [Concomitant]
  12. ADANCOR [Concomitant]

REACTIONS (2)
  - Neutropenia [Recovered/Resolved]
  - Thrombocytopenia [Recovered/Resolved]
